FAERS Safety Report 14996975 (Version 4)
Quarter: 2018Q3

REPORT INFORMATION
  Report Type: Report from Study
  Country: DE (occurrence: DE)
  Receive Date: 20180611
  Receipt Date: 20180912
  Transmission Date: 20181010
  Serious: Yes (Other)
  Sender: FDA-Public Use
  Company Number: DE-PFIZER INC-2018195377

PATIENT
  Age: 72 Year
  Sex: Male
  Weight: 74 kg

DRUGS (7)
  1. NEXIUM MUPS [Concomitant]
     Active Substance: ESOMEPRAZOLE MAGNESIUM
     Indication: PREMEDICATION
     Dosage: 40 MG, 1X/DAY (1?0?0)
     Dates: start: 20170612, end: 20180430
  2. LORAZEPAM. [Suspect]
     Active Substance: LORAZEPAM
     Dosage: UNK
  3. DEKRISTOL [Concomitant]
     Active Substance: CHOLECALCIFEROL
     Indication: PREMEDICATION
     Dosage: 20000 IU, WEEKLY (ON MONDAYS 1?0?0)
     Dates: start: 20170611, end: 20180430
  4. INEGY [Concomitant]
     Active Substance: EZETIMIBE\SIMVASTATIN
     Indication: PREMEDICATION
     Dosage: 1 DF, 1X/DAY (1?0?0)
     Dates: start: 20170611, end: 20180430
  5. PLACEBO [Suspect]
     Active Substance: UNSPECIFIED INGREDIENT
     Dosage: UNK
     Dates: start: 20150622, end: 20170206
  6. TARGIN [Suspect]
     Active Substance: NALOXONE HYDROCHLORIDE\OXYCODONE HYDROCHLORIDE
     Dosage: UNK
  7. OPIPRAMOL [Suspect]
     Active Substance: OPIPRAMOL
     Dosage: UNK

REACTIONS (1)
  - Upper limb fracture [Recovering/Resolving]

NARRATIVE: CASE EVENT DATE: 20180430
